FAERS Safety Report 4955541-5 (Version None)
Quarter: 2006Q1

REPORT INFORMATION
  Report Type: 
  Country: None (occurrence: None)
  Receive Date: 20060328
  Receipt Date: 20060324
  Transmission Date: 20060701
  Serious: Yes (Other)
  Sender: FDA-Public Use
  Company Number: US-GLAXOSMITHKLINE-A0598942A

PATIENT
  Age: 64 Year
  Sex: Male

DRUGS (1)
  1. NICORETTE [Suspect]
     Indication: SMOKING CESSATION THERAPY
     Dosage: 2MG SEE DOSAGE TEXT
     Dates: start: 19960101

REACTIONS (3)
  - CAROTID ARTERY OCCLUSION [None]
  - INCORRECT DRUG ADMINISTRATION DURATION [None]
  - TRANSIENT ISCHAEMIC ATTACK [None]
